FAERS Safety Report 25188582 (Version 1)
Quarter: 2025Q2

REPORT INFORMATION
  Report Type: Spontaneous
  Country: IT (occurrence: IT)
  Receive Date: 20250411
  Receipt Date: 20250411
  Transmission Date: 20250717
  Serious: Yes (Death, Other)
  Sender: EPIC PHARM
  Company Number: IT-EPICPHARMA-IT-2025EPCLIT00441

PATIENT
  Age: 41 Year
  Sex: Male

DRUGS (1)
  1. METHADONE HYDROCHLORIDE [Suspect]
     Active Substance: METHADONE HYDROCHLORIDE
     Indication: Product used for unknown indication
     Route: 065

REACTIONS (2)
  - Asphyxia [Fatal]
  - Toxicity to various agents [Fatal]
